FAERS Safety Report 25089510 (Version 1)
Quarter: 2025Q1

REPORT INFORMATION
  Report Type: Spontaneous
  Country: US (occurrence: None)
  Receive Date: 20250317
  Receipt Date: 20250317
  Transmission Date: 20250408
  Serious: Yes (unspecified)
  Sender: FDA-CTU
  Company Number: None

PATIENT
  Age: 81 Year
  Sex: Male
  Weight: 83 kg

DRUGS (2)
  1. LISINOPRIL [Suspect]
     Active Substance: LISINOPRIL
     Indication: Hypertension
     Dosage: FREQUENCY : DAILY;?
     Route: 048
     Dates: end: 20250220
  2. CHLORTHALIDONE [Suspect]
     Active Substance: CHLORTHALIDONE

REACTIONS (1)
  - Hyperkalaemia [None]

NARRATIVE: CASE EVENT DATE: 20250220
